FAERS Safety Report 22634428 (Version 1)
Quarter: 2023Q2

REPORT INFORMATION
  Report Type: Spontaneous
  Country: US (occurrence: None)
  Receive Date: 20230622
  Receipt Date: 20230622
  Transmission Date: 20230721
  Serious: Yes (Life-Threatening, Hospitalization, Disabling)
  Sender: FDA-Public Use
  Company Number: None

PATIENT
  Age: 60 Year
  Sex: Female
  Weight: 58.5 kg

DRUGS (9)
  1. IPILIMUMAB [Suspect]
     Active Substance: IPILIMUMAB
     Indication: Malignant melanoma
     Dosage: OTHER QUANTITY : 4 INJECTION(S);?
     Route: 042
  2. lisnopril [Concomitant]
  3. HYDRALAZINE [Concomitant]
     Active Substance: HYDRALAZINE HYDROCHLORIDE
  4. THYROXINE [Concomitant]
     Active Substance: LEVOTHYROXINE
  5. HYDROCORTISONE [Concomitant]
     Active Substance: HYDROCORTISONE
  6. LEVODOPA [Concomitant]
     Active Substance: LEVODOPA
  7. BERBERINE [Concomitant]
     Active Substance: BERBERINE
  8. VITAMIN B [Concomitant]
     Active Substance: VITAMIN B
  9. VITAMIN D [Concomitant]
     Active Substance: VITAMIN D NOS

REACTIONS (8)
  - Hypothyroidism [None]
  - Hyponatraemia [None]
  - Hypophysitis [None]
  - Muscular weakness [None]
  - Parkinsonism [None]
  - Brain fog [None]
  - Disease recurrence [None]
  - Malignant melanoma [None]

NARRATIVE: CASE EVENT DATE: 20220124
